FAERS Safety Report 15408355 (Version 2)
Quarter: 2018Q3

REPORT INFORMATION
  Report Type: Spontaneous
  Country: US (occurrence: US)
  Receive Date: 20180920
  Receipt Date: 20180925
  Transmission Date: 20181010
  Serious: Yes (Hospitalization, Other)
  Sender: FDA-Public Use
  Company Number: US-FRESENIUS MEDICAL CARE RENAL THERAPIES GROUP-FMC-1809-001692

PATIENT
  Sex: Male

DRUGS (6)
  1. DELFLEX [Suspect]
     Active Substance: CALCIUM CHLORIDE\DEXTROSE\MAGNESIUM CHLORIDE\SODIUM CHLORIDE\SODIUM LACTATE
     Indication: END STAGE RENAL DISEASE
     Dosage: THREE EXCHANGES OF 2500 ML FOR A TOTAL TREATMENT VOLUME OF 7500 ML
     Route: 033
  2. FERROUS SULFATE. [Concomitant]
     Active Substance: FERROUS SULFATE
  3. ALBUTEROL. [Concomitant]
     Active Substance: ALBUTEROL
  4. SEVELAMER [Concomitant]
     Active Substance: SEVELAMER
  5. ASPIRIN. [Concomitant]
     Active Substance: ASPIRIN
  6. ALPRAZOLAM. [Concomitant]
     Active Substance: ALPRAZOLAM

REACTIONS (2)
  - Peritonitis [Recovered/Resolved]
  - Chronic obstructive pulmonary disease [Recovered/Resolved]

NARRATIVE: CASE EVENT DATE: 20180908
